FAERS Safety Report 9880650 (Version 2)
Quarter: 2014Q1

REPORT INFORMATION
  Report Type: Spontaneous
  Country: GB (occurrence: None)
  Receive Date: 20140205
  Receipt Date: 20140219
  Transmission Date: 20141002
  Serious: Yes (Other)
  Sender: FDA-Public Use
  Company Number: AUR-APL-2014-01077

PATIENT
  Age: 60 Year
  Sex: Female
  Weight: 102 kg

DRUGS (3)
  1. RAMIPRIL (RAMIPRIL) [Suspect]
     Indication: HYPERTENSION
     Route: 048
     Dates: start: 20140116, end: 20140118
  2. BENDROFLUMETHIAZIDE (BENDROFLUMETHIAZIDE) [Concomitant]
  3. VENTOLIN (SALBUTAMOL) [Suspect]

REACTIONS (4)
  - Blood pressure increased [None]
  - Muscular weakness [None]
  - Back pain [None]
  - Headache [None]
